FAERS Safety Report 8547080-X (Version None)
Quarter: 2012Q3

REPORT INFORMATION
  Report Type: 
  Country: None (occurrence: None)
  Receive Date: 20120727
  Receipt Date: 20120316
  Transmission Date: 20120928
  Serious: No
  Sender: FDA-Public Use
  Company Number: US-ASTRAZENECA-2012SE09996

PATIENT
  Age: 55 Year
  Sex: Female

DRUGS (1)
  1. SEROQUEL XR [Suspect]
     Route: 048

REACTIONS (8)
  - FEELING ABNORMAL [None]
  - THINKING ABNORMAL [None]
  - DRUG DOSE OMISSION [None]
  - WITHDRAWAL SYNDROME [None]
  - HYPERHIDROSIS [None]
  - NERVOUSNESS [None]
  - FEAR [None]
  - ANXIETY [None]
